FAERS Safety Report 17238077 (Version 1)
Quarter: 2020Q1

REPORT INFORMATION
  Report Type: Spontaneous
  Country: US (occurrence: US)
  Receive Date: 20200106
  Receipt Date: 20200106
  Transmission Date: 20200409
  Serious: No
  Sender: FDA-Public Use
  Company Number: US-PACIRA-201900235

PATIENT
  Age: 21 Year
  Sex: Female
  Weight: 150 kg

DRUGS (37)
  1. EPINEPHRINE. [Concomitant]
     Active Substance: EPINEPHRINE
     Dosage: 25 MICRO GRAM
     Dates: start: 20180604
  2. CLONIDINE. [Concomitant]
     Active Substance: CLONIDINE
     Dosage: 0.3 MG TWICE DAILY
     Dates: start: 20180814
  3. ACETAMINOPHEN. [Concomitant]
     Active Substance: ACETAMINOPHEN
     Dosage: 1000 MG EVERY 6 HOURS
     Dates: start: 20180604
  4. AMITRIPTYLINE [Concomitant]
     Active Substance: AMITRIPTYLINE
     Dosage: 23 MG DAILY
     Dates: start: 20180123
  5. CELECOXIB. [Concomitant]
     Active Substance: CELECOXIB
     Dosage: 200 MG DAILY
     Dates: start: 20171122
  6. EXPAREL [Suspect]
     Active Substance: BUPIVACAINE
     Indication: NERVE BLOCK
     Dosage: 266 MG, 20 ML
     Dates: start: 20180123
  7. LIDOCAINE. [Concomitant]
     Active Substance: LIDOCAINE
     Indication: LOCAL ANAESTHESIA
     Dosage: 1.5%: 60 MG
     Dates: start: 20171122
  8. CLONIDINE. [Concomitant]
     Active Substance: CLONIDINE
     Dosage: 0.3 MG TWICE DAILY
     Dates: start: 20180123
  9. CLONIDINE. [Concomitant]
     Active Substance: CLONIDINE
     Dosage: 0.3 MG TWICE DAILY
     Dates: start: 20190312
  10. OXYCODONE [Concomitant]
     Active Substance: OXYCODONE
     Dosage: 15 MG EVERY 6 HOURS (100 PILLS)
     Dates: start: 20171122
  11. GABAPENTIN. [Concomitant]
     Active Substance: GABAPENTIN
     Dosage: 300 MG DAILY
     Dates: start: 20180604
  12. OXYCODONE [Concomitant]
     Active Substance: OXYCODONE
     Dosage: 15 MG EVERY 6 HOURS (90 PILLS)
     Dates: start: 20180123
  13. EXPAREL [Suspect]
     Active Substance: BUPIVACAINE
     Indication: NERVE BLOCK
     Dosage: 266 MG, 20 ML
     Dates: start: 20180814
  14. ROPIVACAINE. [Concomitant]
     Active Substance: ROPIVACAINE HYDROCHLORIDE
     Indication: CHEST PAIN
     Dosage: 1%: 200 MG
     Dates: start: 20180604
  15. EPINEPHRINE. [Concomitant]
     Active Substance: EPINEPHRINE
     Dosage: 20 MICRO GRAM
     Dates: start: 20171122
  16. CLONIDINE. [Concomitant]
     Active Substance: CLONIDINE
     Dosage: 0.3 MG TWICE DAILY
     Dates: start: 20181120
  17. OXYCODONE [Concomitant]
     Active Substance: OXYCODONE
     Dosage: 15 MG 3 TIMES DAILY (20 PILLS)
     Dates: start: 20180604
  18. ACETAMINOPHEN. [Concomitant]
     Active Substance: ACETAMINOPHEN
     Dosage: 1000 MG EVERY 6 HOURS
     Dates: start: 20181120
  19. AMITRIPTYLINE [Concomitant]
     Active Substance: AMITRIPTYLINE
     Dosage: 30 MG DAILY
     Dates: start: 20181120
  20. GABAPENTIN. [Concomitant]
     Active Substance: GABAPENTIN
     Dosage: 900 MG DAILY
     Dates: start: 20180814
  21. TRAMADOL. [Concomitant]
     Active Substance: TRAMADOL
     Dosage: 50 MG DAILY
     Dates: start: 20180814
  22. DULOXETINE. [Concomitant]
     Active Substance: DULOXETINE
     Dosage: 30 MG DAILY
     Dates: start: 20180814
  23. CLONIDINE. [Concomitant]
     Active Substance: CLONIDINE
     Dosage: 100 MICRO GRAM, ??0.3 MG TWICE DAILY
     Dates: start: 20180604
  24. AMITRIPTYLINE [Concomitant]
     Active Substance: AMITRIPTYLINE
     Dosage: 30 MG DAILY
     Dates: start: 20180604
  25. CELECOXIB. [Concomitant]
     Active Substance: CELECOXIB
     Dosage: 200 MG DAILY
     Dates: start: 20190312
  26. DULOXETINE. [Concomitant]
     Active Substance: DULOXETINE
     Dosage: 30 MG DAILY
     Dates: start: 20181120
  27. METHYLPREDNISOLONE. [Concomitant]
     Active Substance: METHYLPREDNISOLONE
     Dosage: 60 MG
     Dates: start: 20180814
  28. EXPAREL [Suspect]
     Active Substance: BUPIVACAINE
     Indication: NERVE BLOCK
     Dosage: 266 MG, 20 ML
     Dates: start: 20190312
  29. LIDOCAINE. [Concomitant]
     Active Substance: LIDOCAINE
     Indication: LOCAL ANAESTHESIA
     Dosage: 1.5%: 75 MG
     Dates: start: 20180604
  30. AMITRIPTYLINE [Concomitant]
     Active Substance: AMITRIPTYLINE
     Dosage: 20 MG DAILY
     Dates: start: 20171122
  31. AMITRIPTYLINE [Concomitant]
     Active Substance: AMITRIPTYLINE
     Dosage: 30 MG DAILY
     Dates: start: 20180814
  32. CELECOXIB. [Concomitant]
     Active Substance: CELECOXIB
     Dosage: 200 MG DAILY
     Dates: start: 20181120
  33. EXPAREL [Suspect]
     Active Substance: BUPIVACAINE
     Indication: NERVE BLOCK
     Dosage: 266 MG, 20 ML
     Dates: start: 20181120
  34. ROPIVACAINE. [Concomitant]
     Active Substance: ROPIVACAINE HYDROCHLORIDE
     Indication: CHEST PAIN
     Dosage: 1%: 180 MG
     Dates: start: 20171122
  35. CLONIDINE. [Concomitant]
     Active Substance: CLONIDINE
     Dosage: 280 MICRO GRAM,??0.3 MG TWICE DAILY
     Dates: start: 20171122
  36. ACETAMINOPHEN. [Concomitant]
     Active Substance: ACETAMINOPHEN
     Dosage: 1000 MG EVERY 6 HOURS
     Dates: start: 20180814
  37. ACETAMINOPHEN. [Concomitant]
     Active Substance: ACETAMINOPHEN
     Dosage: 1000 MG EVERY 6 HOURS
     Dates: start: 20190312

REACTIONS (13)
  - Sensory loss [Recovered/Resolved]
  - Muscle spasms [Recovered/Resolved]
  - Hypoaesthesia [Unknown]
  - Injection site bruising [Recovered/Resolved]
  - Muscle spasms [Recovered/Resolved]
  - Hypoaesthesia [Recovered/Resolved]
  - Injection site bruising [Unknown]
  - Muscle spasms [Recovered/Resolved]
  - Hypoaesthesia [Recovered/Resolved]
  - Muscle spasms [Recovered/Resolved]
  - Therapeutic product effect prolonged [Recovered/Resolved]
  - Injection site bruising [Unknown]
  - Hypoaesthesia [Recovered/Resolved]

NARRATIVE: CASE EVENT DATE: 20180123
